FAERS Safety Report 17523816 (Version 1)
Quarter: 2020Q1

REPORT INFORMATION
  Report Type: Spontaneous
  Country: CH (occurrence: CH)
  Receive Date: 20200311
  Receipt Date: 20200311
  Transmission Date: 20200409
  Serious: Yes (Congenital Anomaly)
  Sender: FDA-Public Use
  Company Number: CH-ALLERGAN-2010833US

PATIENT

DRUGS (2)
  1. CITALOPRAM HYDROBROMIDE - BP [Suspect]
     Active Substance: CITALOPRAM HYDROBROMIDE
     Indication: EXPOSURE DURING PREGNANCY
     Route: 064
  2. ZOPICLONE [Suspect]
     Active Substance: ZOPICLONE
     Indication: EXPOSURE DURING PREGNANCY
     Route: 065

REACTIONS (2)
  - Cystic fibrosis [Unknown]
  - Pregnancy [Unknown]
